FAERS Safety Report 7036559-8 (Version None)
Quarter: 2010Q4

REPORT INFORMATION
  Report Type: 
  Country: None (occurrence: None)
  Receive Date: 20101011
  Receipt Date: 20100930
  Transmission Date: 20110411
  Serious: No
  Sender: FDA-Public Use
  Company Number: US-BIOGENIDEC-2010BI034391

PATIENT
  Age: 39 Year
  Sex: Female

DRUGS (1)
  1. TYSABRI [Suspect]
     Indication: MULTIPLE SCLEROSIS
     Route: 042
     Dates: start: 20100916

REACTIONS (6)
  - CHROMATURIA [None]
  - ERYTHEMA [None]
  - HEADACHE [None]
  - PRURITUS [None]
  - URTICARIA [None]
  - VISUAL IMPAIRMENT [None]
